FAERS Safety Report 7366480-7 (Version None)
Quarter: 2011Q1

REPORT INFORMATION
  Report Type: 
  Country: None (occurrence: None)
  Receive Date: 20110322
  Receipt Date: 20110308
  Transmission Date: 20110831
  Serious: Yes (Hospitalization, Other)
  Sender: FDA-Public Use
  Company Number: US-JNJFOC-20101002224

PATIENT
  Sex: Male
  Weight: 59.4 kg

DRUGS (2)
  1. MERCAPTOPURINE [Concomitant]
  2. INFLIXIMAB, RECOMBINANT [Suspect]
     Indication: INFLAMMATORY BOWEL DISEASE
     Dosage: TOTAL 4 DOSES
     Route: 042

REACTIONS (1)
  - INFLAMMATORY BOWEL DISEASE [None]
